FAERS Safety Report 16762234 (Version 6)
Quarter: 2025Q3

REPORT INFORMATION
  Report Type: Spontaneous
  Country: EU (occurrence: EU)
  Receive Date: 20190831
  Receipt Date: 20250926
  Transmission Date: 20251021
  Serious: Yes (Death, Life-Threatening, Hospitalization, Other)
  Sender: AUROBINDO
  Company Number: EU-AUROBINDO-AUR-APL-2019-057032

PATIENT
  Age: 65 Year
  Sex: Female

DRUGS (12)
  1. ARIPIPRAZOLE [Suspect]
     Active Substance: ARIPIPRAZOLE
     Indication: Mental disorder
     Dosage: 15 MILLIGRAM, ONCE A DAY
     Route: 065
  2. MIRTAZAPINE [Suspect]
     Active Substance: MIRTAZAPINE
     Indication: Mental disorder
     Dosage: 15 MILLIGRAM, ONCE A DAY
     Route: 048
  3. NOREPINEPHRINE [Suspect]
     Active Substance: NOREPINEPHRINE
     Indication: Supraventricular tachycardia
     Route: 042
  4. NEFOPAM [Suspect]
     Active Substance: NEFOPAM
     Indication: Analgesic therapy
     Dosage: 60 MILLIGRAM, ONCE A DAY
     Route: 048
  5. NEFOPAM [Suspect]
     Active Substance: NEFOPAM
     Dosage: 30 MILLIGRAM, ONCE A DAY
     Route: 048
  6. NEFOPAM [Suspect]
     Active Substance: NEFOPAM
     Dosage: 120 MILLIGRAM, ONCE A DAY
     Route: 048
  7. BUPROPION [Suspect]
     Active Substance: BUPROPION
     Indication: Mental disorder
     Dosage: 300 MILLIGRAM, ONCE A DAY
     Route: 065
  8. AMITRIPTYLINE [Suspect]
     Active Substance: AMITRIPTYLINE
     Indication: Mental disorder
     Dosage: 75 MILLIGRAM, ONCE A DAY
     Route: 065
  9. TRAMADOL [Suspect]
     Active Substance: TRAMADOL
     Indication: Mental disorder
     Dosage: 300 MILLIGRAM, ONCE A DAY
     Route: 065
  10. AMISULPRIDE [Suspect]
     Active Substance: AMISULPRIDE
     Indication: Mental disorder
     Dosage: 50 MILLIGRAM, ONCE A DAY
     Route: 065
  11. EPINEPHRINE [Suspect]
     Active Substance: EPINEPHRINE
     Indication: Supraventricular tachycardia
     Route: 042
  12. NOREPINEPHRINE [Concomitant]
     Active Substance: NOREPINEPHRINE
     Indication: Supraventricular tachycardia
     Route: 065

REACTIONS (16)
  - Shock [Fatal]
  - Serotonin syndrome [Fatal]
  - Respiratory failure [Fatal]
  - Hyperlactacidaemia [Fatal]
  - Loss of consciousness [Fatal]
  - Hyperhidrosis [Fatal]
  - Autonomic nervous system imbalance [Fatal]
  - Dyspnoea [Fatal]
  - Myoclonus [Fatal]
  - Mydriasis [Fatal]
  - Supraventricular tachycardia [Unknown]
  - Haemodynamic instability [Unknown]
  - Chronic obstructive pulmonary disease [Not Recovered/Not Resolved]
  - Drug ineffective [Not Recovered/Not Resolved]
  - Cognitive disorder [Unknown]
  - Hyperthermia [Unknown]
